FAERS Safety Report 10025495 (Version 1)
Quarter: 2014Q1

REPORT INFORMATION
  Report Type: Spontaneous
  Country: US (occurrence: None)
  Receive Date: 20140319
  Receipt Date: 20140319
  Transmission Date: 20141002
  Serious: Yes (Other)
  Sender: FDA-Public Use
  Company Number: None

PATIENT
  Age: 72 Year
  Sex: Male
  Weight: 69.5 kg

DRUGS (1)
  1. TACROLIMUS [Suspect]
     Route: 048
     Dates: start: 20140112, end: 20140128

REACTIONS (1)
  - Nephrolithiasis [None]
